FAERS Safety Report 5223642-2 (Version None)
Quarter: 2007Q1

REPORT INFORMATION
  Report Type: 
  Country: None (occurrence: None)
  Receive Date: 20070125
  Receipt Date: 20070115
  Transmission Date: 20070707
  Serious: Yes (Hospitalization)
  Sender: FDA-Public Use
  Company Number: FRWYE132612JAN07

PATIENT
  Age: 46 Year
  Sex: Male

DRUGS (4)
  1. EFFEXOR XR [Suspect]
     Indication: DEPRESSION
     Dosage: 150 MG TOTAL DAILY; 225 MG TOTAL DAILY
     Route: 048
     Dates: start: 20060101, end: 20060101
  2. EFFEXOR XR [Suspect]
     Indication: DEPRESSION
     Dosage: 150 MG TOTAL DAILY; 225 MG TOTAL DAILY
     Route: 048
     Dates: start: 20060101
  3. LORAZEPAM [Concomitant]
  4. PIPORTIL (PIPOTIAZINE) [Suspect]
     Dosage: 3 DROP 1X PER 1 DAY
     Route: 048

REACTIONS (5)
  - DYSURIA [None]
  - HYDRONEPHROSIS [None]
  - HYPERTENSION [None]
  - HYPOTONIC URINARY BLADDER [None]
  - URINARY RETENTION [None]
